FAERS Safety Report 23647341 (Version 1)
Quarter: 2024Q1

REPORT INFORMATION
  Report Type: Spontaneous
  Country: NL (occurrence: NL)
  Receive Date: 20240319
  Receipt Date: 20240319
  Transmission Date: 20240409
  Serious: Yes (Hospitalization)
  Sender: FDA-Public Use
  Company Number: NL-GILEAD-2024-0663834

PATIENT
  Sex: Male
  Weight: 83 kg

DRUGS (26)
  1. PEMETREXED [Suspect]
     Active Substance: PEMETREXED
     Indication: Non-small cell lung cancer metastatic
     Dosage: 1050 MILLIGRAM
     Route: 042
     Dates: start: 20231219, end: 20231219
  2. PEMETREXED [Suspect]
     Active Substance: PEMETREXED
     Dosage: 1050 MILLIGRAM
     Route: 042
     Dates: start: 20240108, end: 20240108
  3. PEMETREXED [Suspect]
     Active Substance: PEMETREXED
     Dosage: 540 MILLIGRAM
     Route: 042
     Dates: start: 20240130, end: 20240130
  4. PEMETREXED [Suspect]
     Active Substance: PEMETREXED
     Dosage: 1050 MILLIGRAM
     Route: 042
     Dates: start: 20240219, end: 20240219
  5. CARBOPLATIN [Suspect]
     Active Substance: CARBOPLATIN
     Indication: Non-small cell lung cancer metastatic
     Dosage: 560 MILLIGRAM
     Route: 042
     Dates: start: 20231219, end: 20231219
  6. CARBOPLATIN [Suspect]
     Active Substance: CARBOPLATIN
     Dosage: 550 MILLIGRAM
     Route: 042
     Dates: start: 20240108, end: 20240108
  7. CARBOPLATIN [Suspect]
     Active Substance: CARBOPLATIN
     Dosage: 526.35 MILLIGRAM
     Route: 042
     Dates: start: 20240130, end: 20240130
  8. CARBOPLATIN [Suspect]
     Active Substance: CARBOPLATIN
     Dosage: 510 MILLIGRAM
     Route: 042
     Dates: start: 20240219, end: 20240219
  9. PEMBROLIZUMAB [Suspect]
     Active Substance: PEMBROLIZUMAB
     Indication: Non-small cell lung cancer metastatic
     Dosage: 200 MILLIGRAM
     Route: 042
     Dates: start: 20231219, end: 20231219
  10. PEMBROLIZUMAB [Suspect]
     Active Substance: PEMBROLIZUMAB
     Dosage: 200 MILLIGRAM
     Route: 042
     Dates: start: 20240108, end: 20240108
  11. PEMBROLIZUMAB [Suspect]
     Active Substance: PEMBROLIZUMAB
     Dosage: 200 MILLIGRAM
     Route: 042
     Dates: start: 20240130, end: 20240130
  12. PEMBROLIZUMAB [Suspect]
     Active Substance: PEMBROLIZUMAB
     Dosage: 200 MILLIGRAM
     Route: 042
     Dates: start: 20240219, end: 20240219
  13. EZETIMIBE [Concomitant]
     Active Substance: EZETIMIBE
     Indication: Hypercholesterolaemia
     Dosage: UNK
     Route: 048
     Dates: start: 2015
  14. BECLOMETHASONE\FORMOTEROL [Concomitant]
     Active Substance: BECLOMETHASONE\FORMOTEROL
     Indication: Prophylaxis
     Dosage: UNK
     Route: 055
     Dates: start: 20221111
  15. HYDROCHLOROTHIAZIDE [Concomitant]
     Active Substance: HYDROCHLOROTHIAZIDE
     Indication: Hypertension
     Dosage: UNK
     Route: 048
     Dates: start: 2015
  16. FOLIC ACID [Concomitant]
     Active Substance: FOLIC ACID
     Indication: Prophylaxis
     Dosage: UNK
     Route: 048
     Dates: start: 20231207
  17. POLYETHYLENE GLYCOLS [Concomitant]
     Active Substance: POLYETHYLENE GLYCOLS
     Indication: Constipation
     Dosage: UNK
     Route: 048
     Dates: start: 20231221
  18. APREPITANT [Concomitant]
     Active Substance: APREPITANT
     Indication: Premedication
     Dosage: UNK
     Route: 048
     Dates: start: 20231219
  19. VALSARTAN [Concomitant]
     Active Substance: VALSARTAN
     Indication: Hypertension
     Dosage: UNK
     Route: 048
     Dates: start: 2015
  20. GRANISETRON [Concomitant]
     Active Substance: GRANISETRON
     Indication: Premedication
     Dosage: UNK
     Route: 048
     Dates: start: 20231219
  21. SODIUM LAURYL SULFOACETATE [Concomitant]
     Active Substance: SODIUM LAURYL SULFOACETATE
     Indication: Abdominal pain
     Dosage: UNK
     Route: 054
     Dates: start: 20240227
  22. LACTULOSE [Concomitant]
     Active Substance: LACTULOSE
     Indication: Constipation
     Dosage: UNK
     Route: 048
     Dates: start: 20240129
  23. METOCLOPRAMIDE [Concomitant]
     Active Substance: METOCLOPRAMIDE
     Indication: Premedication
     Dosage: UNK
     Route: 048
     Dates: start: 20231219
  24. HYDROXOCOBALAMIN [Concomitant]
     Active Substance: HYDROXOCOBALAMIN
     Indication: Prophylaxis
     Dosage: UNK
     Route: 030
     Dates: start: 20231207
  25. DEXAMETHASONE [Concomitant]
     Active Substance: DEXAMETHASONE
     Indication: Premedication
     Dosage: UNK
     Route: 048
     Dates: start: 20231219
  26. SORBITOL [Concomitant]
     Active Substance: SORBITOL
     Indication: Abdominal pain
     Dosage: UNK
     Route: 065
     Dates: start: 20240227

REACTIONS (1)
  - Angiopathy [Recovering/Resolving]

NARRATIVE: CASE EVENT DATE: 20240227
